FAERS Safety Report 11632642 (Version 1)
Quarter: 2015Q4

REPORT INFORMATION
  Report Type: Spontaneous
  Country: US (occurrence: US)
  Receive Date: 20151015
  Receipt Date: 20151015
  Transmission Date: 20160304
  Serious: No
  Sender: FDA-Public Use
  Company Number: US-BIOGENIDEC-2015BI138702

PATIENT
  Age: 62 Year
  Sex: Female

DRUGS (2)
  1. TECFIDERA [Suspect]
     Active Substance: DIMETHYL FUMARATE
     Indication: PRODUCT USED FOR UNKNOWN INDICATION
  2. AMPYRA [Concomitant]
     Active Substance: DALFAMPRIDINE
     Indication: MULTIPLE SCLEROSIS
     Route: 048
     Dates: start: 20110228, end: 2011

REACTIONS (10)
  - Adverse drug reaction [Unknown]
  - Muscle tightness [Unknown]
  - Flushing [Unknown]
  - Headache [Unknown]
  - Disturbance in attention [Unknown]
  - Discomfort [Unknown]
  - Pruritus [Unknown]
  - Fatigue [Unknown]
  - Confusional state [Unknown]
  - Extra dose administered [Unknown]

NARRATIVE: CASE EVENT DATE: 2011
